FAERS Safety Report 6379687-2 (Version None)
Quarter: 2009Q3

REPORT INFORMATION
  Report Type: 
  Country: None (occurrence: None)
  Receive Date: 20090928
  Receipt Date: 20090904
  Transmission Date: 20100115
  Serious: Yes (Hospitalization)
  Sender: FDA-Public Use
  Company Number: US-ROCHE-655440

PATIENT
  Sex: Male
  Weight: 232 kg

DRUGS (8)
  1. KLONOPIN [Suspect]
     Indication: DRUG USE FOR UNKNOWN INDICATION
     Route: 065
     Dates: start: 20090701
  2. PEG-INTERFERON ALFA 2A (RO 25-8310) [Suspect]
     Dosage: TEMPORARILY INTERRUPTED.
     Route: 058
     Dates: start: 20090714, end: 20090901
  3. RIBAVIRIN [Suspect]
     Route: 048
     Dates: start: 20090714, end: 20090831
  4. ULTRAM [Suspect]
     Indication: DRUG USE FOR UNKNOWN INDICATION
     Route: 065
  5. XANAX [Suspect]
     Indication: DRUG USE FOR UNKNOWN INDICATION
     Route: 065
  6. CELEXA [Suspect]
     Indication: DRUG USE FOR UNKNOWN INDICATION
     Route: 065
     Dates: start: 20090701
  7. FLEXERIL [Suspect]
     Indication: DRUG USE FOR UNKNOWN INDICATION
     Route: 065
  8. TRAZODONE [Suspect]
     Indication: DRUG USE FOR UNKNOWN INDICATION
     Route: 065
     Dates: start: 20090701

REACTIONS (2)
  - PNEUMONIA [None]
  - RHABDOMYOLYSIS [None]
